FAERS Safety Report 5831570-4 (Version None)
Quarter: 2008Q3

REPORT INFORMATION
  Report Type: 
  Country: None (occurrence: None)
  Receive Date: 20080801
  Receipt Date: 20080721
  Transmission Date: 20090109
  Serious: Yes (Disabling)
  Sender: FDA-Public Use
  Company Number: AU-PFIZER INC-2008061922

PATIENT
  Age: 65 Year
  Sex: Male

DRUGS (2)
  1. CHANTIX [Suspect]
     Route: 048
  2. LOVAN [Concomitant]

REACTIONS (2)
  - CONFUSIONAL STATE [None]
  - NEGATIVE THOUGHTS [None]
